FAERS Safety Report 8004121-6 (Version None)
Quarter: 2011Q4

REPORT INFORMATION
  Report Type: 
  Country: None (occurrence: None)
  Receive Date: 20111222
  Receipt Date: 20111219
  Transmission Date: 20120403
  Serious: Yes (Hospitalization)
  Sender: FDA-Public Use
  Company Number: PL-BRISTOL-MYERS SQUIBB COMPANY-16081945

PATIENT
  Age: 63 Year
  Sex: Female

DRUGS (5)
  1. TPN [Concomitant]
     Dates: start: 20071030
  2. LEVOTHYROXINE SODIUM [Concomitant]
     Dates: start: 20100213
  3. DETRALEX [Concomitant]
     Dates: start: 20070402
  4. PROPRANOLOL [Concomitant]
     Dates: start: 20071030
  5. IPILIMUMAB [Suspect]
     Indication: MALIGNANT MELANOMA
     Dosage: NO OF COURSES:23
     Route: 042
     Dates: start: 20070727, end: 20110726

REACTIONS (1)
  - DIABETIC KETOACIDOSIS [None]
